FAERS Safety Report 17236663 (Version 1)
Quarter: 2020Q1

REPORT INFORMATION
  Report Type: Spontaneous
  Country: SE (occurrence: SE)
  Receive Date: 20200106
  Receipt Date: 20200106
  Transmission Date: 20200409
  Serious: Yes (Hospitalization, Other)
  Sender: FDA-Public Use
  Company Number: SE-PFIZER INC-2020001063

PATIENT
  Sex: Male

DRUGS (3)
  1. SERTRALINE HCL [Suspect]
     Active Substance: SERTRALINE HYDROCHLORIDE
     Dosage: 1250 MG, UNK
     Route: 048
     Dates: start: 20190630, end: 20190630
  2. LERGIGAN [PROMETHAZINE HYDROCHLORIDE] [Suspect]
     Active Substance: PROMETHAZINE HYDROCHLORIDE
     Dosage: 375 MG, UNK
     Route: 048
     Dates: start: 20190630, end: 20190630
  3. PROPAVAN [Suspect]
     Active Substance: PROPIOMAZINE
     Dosage: 750 MG, UNK
     Route: 048
     Dates: start: 20190630, end: 20190630

REACTIONS (3)
  - Intentional overdose [Unknown]
  - Intentional self-injury [Unknown]
  - Depressed mood [Unknown]

NARRATIVE: CASE EVENT DATE: 20190630
